FAERS Safety Report 6197191-1 (Version None)
Quarter: 2009Q2

REPORT INFORMATION
  Report Type: 
  Country: None (occurrence: None)
  Receive Date: 20090520
  Receipt Date: 20090518
  Transmission Date: 20091009
  Serious: Yes (Hospitalization)
  Sender: FDA-Public Use
  Company Number: IN-MERCK-0905USA02176

PATIENT
  Age: 56 Year
  Sex: Male
  Weight: 75 kg

DRUGS (5)
  1. JANUVIA [Suspect]
     Indication: BLOOD GLUCOSE
     Route: 048
  2. HUMALOG MIX 50/50 [Concomitant]
     Route: 065
  3. ROSICON MF [Concomitant]
     Route: 065
  4. METFORMIN [Concomitant]
     Route: 065
  5. RAMIPRIL AND TELMISARTAN [Concomitant]
     Route: 065

REACTIONS (2)
  - DIARRHOEA [None]
  - VOMITING [None]
